FAERS Safety Report 10679836 (Version 6)
Quarter: 2015Q2

REPORT INFORMATION
  Report Type: Spontaneous
  Country: US (occurrence: US)
  Receive Date: 20141229
  Receipt Date: 20150602
  Transmission Date: 20150821
  Serious: No
  Sender: FDA-Public Use
  Company Number: US-PFIZER INC-2014357532

PATIENT
  Age: 64 Year
  Sex: Male
  Weight: 145 kg

DRUGS (21)
  1. LYRICA [Interacting]
     Active Substance: PREGABALIN
     Indication: NEUROPATHY PERIPHERAL
  2. CYCLOBENZAPRINE [Concomitant]
     Active Substance: CYCLOBENZAPRINE
     Dosage: 10 MG, 3X/DAY
  3. FUROSEMIDE. [Concomitant]
     Active Substance: FUROSEMIDE
     Dosage: 40 MG, DAILY
     Dates: start: 20140912
  4. ASPIRIN. [Concomitant]
     Active Substance: ASPIRIN
     Dosage: 81 MG, 1X/DAY
     Dates: start: 20131009, end: 20140916
  5. LYRICA [Interacting]
     Active Substance: PREGABALIN
     Indication: BACK PAIN
     Dosage: 50 MG, DAILY
     Dates: end: 20141216
  6. LYRICA [Interacting]
     Active Substance: PREGABALIN
     Indication: MOBILITY DECREASED
     Dosage: 50 MG, 2X/DAY
     Route: 048
     Dates: end: 20141001
  7. LANTUS [Concomitant]
     Active Substance: INSULIN GLARGINE
     Dosage: 85 UNITS 1 TIME PER DAY
  8. LYRICA [Suspect]
     Active Substance: PREGABALIN
     Indication: NEURALGIA
     Dosage: 50 MG, DAILY AT BEDTIME
     Route: 048
     Dates: end: 201409
  9. LYRICA [Interacting]
     Active Substance: PREGABALIN
     Indication: ARTHRALGIA
     Dosage: 50 MG, 3X/DAY
     Route: 048
     Dates: start: 201409
  10. NEXIUM [Concomitant]
     Active Substance: ESOMEPRAZOLE MAGNESIUM
     Dosage: 40 MG, DAILY
  11. LYRICA [Interacting]
     Active Substance: PREGABALIN
     Indication: BACK PAIN
  12. METFORMIN [Concomitant]
     Active Substance: METFORMIN HYDROCHLORIDE
     Indication: DIABETES MELLITUS
     Dosage: 500 MG, 4X/DAY
  13. ATORVASTATIN [Concomitant]
     Active Substance: ATORVASTATIN
     Dosage: 40 MG, DAILY
  14. FENOFIBRATE. [Concomitant]
     Active Substance: FENOFIBRATE
     Dosage: 160 MG, DAILY
     Dates: start: 20140916
  15. GLIPIZIDE. [Concomitant]
     Active Substance: GLIPIZIDE
     Dosage: 10 MG TWICE A DAY
     Dates: start: 20140519
  16. GLIPIZIDE. [Concomitant]
     Active Substance: GLIPIZIDE
     Dosage: 10 MG, HALF A TABLET TWICE A DAY
  17. PANTOPRAZOLE SODIUM [Concomitant]
     Dosage: 40 MG, 1X/DAY
     Dates: start: 20140523
  18. LISINOPRIL. [Concomitant]
     Active Substance: LISINOPRIL
     Dosage: 20 MG, 1X/DAY
     Dates: start: 20140502
  19. BENAZEPRIL [Concomitant]
     Active Substance: BENAZEPRIL\BENAZEPRIL HYDROCHLORIDE
     Dosage: 40 MG, DAILY
  20. ISOSORBIDE-MN [Concomitant]
     Dosage: 30 MG, DAILY
     Dates: start: 20140709
  21. NOVOLOG [Concomitant]
     Active Substance: INSULIN ASPART
     Dosage: AVERAGE 35 UNITS 3 TIMES A DAY
     Dates: start: 20140806

REACTIONS (8)
  - Affect lability [Unknown]
  - Crying [Unknown]
  - Drug intolerance [Unknown]
  - Depression [Not Recovered/Not Resolved]
  - Drug interaction [Unknown]
  - Drug ineffective [Not Recovered/Not Resolved]
  - Condition aggravated [Unknown]
  - Agitation [Not Recovered/Not Resolved]

NARRATIVE: CASE EVENT DATE: 201409
